FAERS Safety Report 14354175 (Version 1)
Quarter: 2018Q1

REPORT INFORMATION
  Report Type: Spontaneous
  Country: US (occurrence: US)
  Receive Date: 20180105
  Receipt Date: 20180105
  Transmission Date: 20180509
  Serious: Yes (Other)
  Sender: FDA-Public Use
  Company Number: US-AMGEN-USASP2018000736

PATIENT
  Sex: Female

DRUGS (1)
  1. ENBREL [Suspect]
     Active Substance: ETANERCEPT
     Indication: RHEUMATOID ARTHRITIS
     Dosage: 50 MG, QWK
     Route: 065
     Dates: start: 2011, end: 201605

REACTIONS (6)
  - Bedridden [Unknown]
  - Abdominal mass [Unknown]
  - Gastric cancer [Recovering/Resolving]
  - Oesophageal carcinoma [Recovering/Resolving]
  - Pulmonary embolism [Unknown]
  - Gait inability [Unknown]

NARRATIVE: CASE EVENT DATE: 2016
